FAERS Safety Report 5616709-8 (Version None)
Quarter: 2008Q1

REPORT INFORMATION
  Report Type: 
  Country: None (occurrence: None)
  Receive Date: 20080204
  Receipt Date: 20080122
  Transmission Date: 20080703
  Serious: Yes (Other)
  Sender: FDA-Public Use
  Company Number: A-CH2008-19234

PATIENT
  Age: 47 Year
  Sex: Female
  Weight: 80 kg

DRUGS (10)
  1. TRACLEER [Suspect]
     Indication: PULMONARY HYPERTENSION
     Dosage: 62.5 MG, BID, 125 MG, BID; ORAL
     Route: 048
     Dates: start: 20070827, end: 20070921
  2. TRACLEER [Suspect]
     Indication: PULMONARY HYPERTENSION
     Dosage: 62.5 MG, BID, 125 MG, BID; ORAL
     Route: 048
     Dates: start: 20070822, end: 20080108
  3. REMODULIN (TREPROSTINIL) [Concomitant]
  4. VIAGRA [Concomitant]
  5. MARCUMAR [Concomitant]
  6. BUMETANIDE [Concomitant]
  7. ALDACTONE [Concomitant]
  8. PLAVIX [Concomitant]
  9. TRAZOLAN (TRAZODONE HYDROCHLORIDE) [Concomitant]
  10. LANZOPRAZOL (LANSOPRAZOLE) [Concomitant]

REACTIONS (1)
  - TRANSPLANT [None]
